FAERS Safety Report 10255515 (Version 1)
Quarter: 2014Q2

REPORT INFORMATION
  Report Type: Spontaneous
  Country: US (occurrence: None)
  Receive Date: 20140522
  Receipt Date: 20140522
  Transmission Date: 20141212
  Serious: No
  Sender: FDA-Public Use
  Company Number: 1000066175

PATIENT
  Age: 74 Year
  Sex: Male

DRUGS (2)
  1. TUDORZA PRESSAIR (ACLIDINIUM BROMIDE) (400 MICROGRAM, POWDER) [Suspect]
     Route: 055
     Dates: start: 201403
  2. CARBAMAZEPINE [Concomitant]

REACTIONS (2)
  - Dizziness [None]
  - Headache [None]
